FAERS Safety Report 26095244 (Version 1)
Quarter: 2025Q4

REPORT INFORMATION
  Report Type: Spontaneous
  Country: EU (occurrence: EU)
  Receive Date: 20251127
  Receipt Date: 20251127
  Transmission Date: 20260117
  Serious: Yes (Hospitalization, Other)
  Sender: AMGEN
  Company Number: None

PATIENT
  Age: 12 Year
  Sex: Male
  Weight: 37.1 kg

DRUGS (2)
  1. NPLATE [Suspect]
     Active Substance: ROMIPLOSTIM
     Indication: Immune thrombocytopenia
     Dosage: 200 MICROGRAM, QWK
     Route: 058
     Dates: start: 20251024, end: 20251031
  2. SIROLIMUS [Suspect]
     Active Substance: SIROLIMUS
     Indication: Immune thrombocytopenia
     Dosage: 2.5 MILLIGRAM, QD
     Route: 048
     Dates: start: 20251023, end: 20251028

REACTIONS (1)
  - Myocarditis [Recovering/Resolving]

NARRATIVE: CASE EVENT DATE: 20251027
